FAERS Safety Report 7936396-3 (Version None)
Quarter: 2011Q4

REPORT INFORMATION
  Report Type: 
  Country: None (occurrence: None)
  Receive Date: 20111123
  Receipt Date: 20111121
  Transmission Date: 20120403
  Serious: Yes (Other)
  Sender: FDA-Public Use
  Company Number: US-AMGEN-USASP2011057405

PATIENT
  Age: 8 Year
  Sex: Female

DRUGS (5)
  1. NEUPOGEN [Suspect]
     Indication: HISTIOCYTOSIS HAEMATOPHAGIC
     Dates: start: 20110101
  2. CORTICOSTEROIDS [Concomitant]
     Indication: HISTIOCYTOSIS HAEMATOPHAGIC
  3. ANTINEOPLASTIC AGENTS [Concomitant]
     Indication: HISTIOCYTOSIS HAEMATOPHAGIC
  4. STEROIDS [Concomitant]
  5. PLATELETS [Concomitant]

REACTIONS (3)
  - SURGERY [None]
  - ESCHERICHIA INFECTION [None]
  - DRUG INEFFECTIVE [None]
